FAERS Safety Report 11499391 (Version 2)
Quarter: 2016Q1

REPORT INFORMATION
  Report Type: Report from Study
  Country: BR (occurrence: BR)
  Receive Date: 20150914
  Receipt Date: 20160315
  Transmission Date: 20160525
  Serious: Yes (Other)
  Sender: FDA-Public Use
  Company Number: BR-ROCHE-1247799

PATIENT
  Age: 83 Year
  Sex: Female
  Weight: 73 kg

DRUGS (4)
  1. ACTEMRA [Suspect]
     Active Substance: TOCILIZUMAB
     Route: 042
     Dates: start: 20150801
  2. REDOXON [Concomitant]
     Active Substance: ASCORBIC ACID
  3. ACTEMRA [Suspect]
     Active Substance: TOCILIZUMAB
     Indication: RHEUMATOID ARTHRITIS
     Dosage: LAST INFUSION: 01/FEB/2016.
     Route: 042
     Dates: start: 20100501
  4. OMEPRAZOLE. [Concomitant]
     Active Substance: OMEPRAZOLE

REACTIONS (12)
  - Hypertension [Unknown]
  - Rheumatic disorder [Unknown]
  - Immunodeficiency [Recovered/Resolved]
  - Joint swelling [Unknown]
  - Hypersensitivity [Unknown]
  - Neck pain [Not Recovered/Not Resolved]
  - Kidney infection [Recovered/Resolved]
  - Eye swelling [Unknown]
  - Peripheral swelling [Unknown]
  - Pain in extremity [Unknown]
  - Muscle spasms [Unknown]
  - Bacterial infection [Recovered/Resolved]

NARRATIVE: CASE EVENT DATE: 201306
